FAERS Safety Report 5168476-2 (Version None)
Quarter: 2006Q4

REPORT INFORMATION
  Report Type: 
  Country: None (occurrence: None)
  Receive Date: 20061208
  Receipt Date: 20061130
  Transmission Date: 20070319
  Serious: Yes (Hospitalization)
  Sender: FDA-Public Use
  Company Number: AU-ROCHE-473314

PATIENT
  Age: 45 Year
  Sex: Male
  Weight: 114 kg

DRUGS (5)
  1. PEG-INTERFERON ALFA 2A (RO 25-8310) [Suspect]
     Dosage: FORM REPORTED AS INJECTION.
     Route: 058
     Dates: start: 20060619
  2. RIBAVIRIN [Suspect]
     Route: 048
     Dates: start: 20060619, end: 20061127
  3. RIBAVIRIN [Suspect]
     Route: 048
     Dates: start: 20061128
  4. AVAPRO [Concomitant]
     Dates: start: 20050615
  5. ZOLPIDEM TARTRATE [Suspect]
     Indication: DRUG USE FOR UNKNOWN INDICATION
     Dosage: TAKEN AT NIGHT.
     Route: 065
     Dates: start: 20061126

REACTIONS (2)
  - DELIRIUM [None]
  - FALL [None]
